FAERS Safety Report 5527939-8 (Version None)
Quarter: 2007Q4

REPORT INFORMATION
  Report Type: 
  Country: None (occurrence: None)
  Receive Date: 20071128
  Receipt Date: 20071121
  Transmission Date: 20080405
  Serious: Yes (Life-Threatening, Hospitalization)
  Sender: FDA-Public Use
  Company Number: DE-ROCHE-357398

PATIENT
  Age: 57 Year
  Sex: Female

DRUGS (38)
  1. DACLIZUMAB [Suspect]
     Route: 042
  2. DACLIZUMAB [Suspect]
     Route: 042
     Dates: start: 20040120, end: 20040120
  3. DACLIZUMAB [Suspect]
     Route: 042
     Dates: end: 20040316
  4. MYCOPHENOLATE MOFETIL [Suspect]
     Route: 048
     Dates: start: 20040120
  5. MYCOPHENOLATE MOFETIL [Suspect]
     Route: 048
     Dates: start: 20040121
  6. MYCOPHENOLATE MOFETIL [Suspect]
     Route: 048
     Dates: start: 20040331
  7. MYCOPHENOLATE MOFETIL [Suspect]
     Route: 048
     Dates: start: 20040407
  8. MYCOPHENOLATE MOFETIL [Suspect]
     Route: 048
     Dates: start: 20040420, end: 20040616
  9. MYCOPHENOLATE MOFETIL [Suspect]
     Dosage: LAST DOSE PRIOR TO SAE: 23 MAY 2005
     Route: 048
  10. TACROLIMUS [Suspect]
     Route: 048
     Dates: start: 20040120
  11. TACROLIMUS [Suspect]
     Route: 048
     Dates: start: 20040121
  12. TACROLIMUS [Suspect]
     Route: 048
     Dates: start: 20040123
  13. TACROLIMUS [Suspect]
     Route: 048
     Dates: start: 20040125
  14. TACROLIMUS [Suspect]
     Route: 048
     Dates: start: 20040127
  15. TACROLIMUS [Suspect]
     Route: 048
     Dates: start: 20040128
  16. TACROLIMUS [Suspect]
     Route: 048
     Dates: start: 20040130
  17. TACROLIMUS [Suspect]
     Route: 048
     Dates: start: 20040131
  18. TACROLIMUS [Suspect]
     Route: 048
     Dates: start: 20040201
  19. TACROLIMUS [Suspect]
     Route: 048
     Dates: start: 20040203
  20. TACROLIMUS [Suspect]
     Route: 048
     Dates: start: 20040204
  21. TACROLIMUS [Suspect]
     Route: 048
     Dates: start: 20040210
  22. TACROLIMUS [Suspect]
     Route: 048
     Dates: start: 20040211
  23. TACROLIMUS [Suspect]
     Route: 048
     Dates: start: 20040217
  24. TACROLIMUS [Suspect]
     Route: 048
     Dates: start: 20040325
  25. TACROLIMUS [Suspect]
     Route: 048
     Dates: start: 20040407
  26. TACROLIMUS [Suspect]
     Route: 048
     Dates: start: 20040420
  27. TACROLIMUS [Suspect]
     Route: 048
     Dates: start: 20040616
  28. TACROLIMUS [Suspect]
     Route: 048
  29. TACROLIMUS [Suspect]
     Dosage: LAST DOSE PRIOR TO SAE: 23 MAY 2005
     Route: 048
  30. DECORTIN H [Suspect]
     Route: 048
     Dates: start: 20040122
  31. DECORTIN H [Suspect]
     Route: 048
     Dates: start: 20040204
  32. DECORTIN H [Suspect]
     Route: 048
     Dates: start: 20040217
  33. DECORTIN H [Suspect]
     Route: 048
     Dates: start: 20040325
  34. DECORTIN H [Suspect]
     Dosage: LAST DOSE PRIOR TO SAE: 23 MAY 2005
     Route: 048
  35. SOLU-DECORTIN [Suspect]
     Route: 065
     Dates: start: 20040120
  36. SOLU-DECORTIN [Suspect]
     Route: 065
     Dates: start: 20040121, end: 20040122
  37. ATGAM [Suspect]
     Indication: DRUG USE FOR UNKNOWN INDICATION
     Route: 042
     Dates: start: 20040123, end: 20040127
  38. HEPARIN [Suspect]
     Indication: DRUG USE FOR UNKNOWN INDICATION
     Route: 042
     Dates: start: 20040122, end: 20040127

REACTIONS (6)
  - COMPLICATIONS OF TRANSPLANTED KIDNEY [None]
  - CYTOMEGALOVIRUS INFECTION [None]
  - ENTERITIS [None]
  - HAEMORRHAGE SUBCUTANEOUS [None]
  - RENAL CYST [None]
  - THROMBOSIS [None]
